FAERS Safety Report 4489977-6 (Version None)
Quarter: 2004Q4

REPORT INFORMATION
  Report Type: 
  Country: None (occurrence: None)
  Receive Date: 20041101
  Receipt Date: 20041022
  Transmission Date: 20050328
  Serious: Yes (Life-Threatening)
  Sender: FDA-Public Use
  Company Number: NL-GLAXOSMITHKLINE-B0349642A

PATIENT

DRUGS (1)
  1. ROSIGLITAZONE MALEATE [Suspect]

REACTIONS (1)
  - CARDIAC ARREST [None]
